FAERS Safety Report 4605614-1 (Version None)
Quarter: 2005Q1

REPORT INFORMATION
  Report Type: 
  Country: None (occurrence: None)
  Receive Date: 20050310
  Receipt Date: 20041118
  Transmission Date: 20050727
  Serious: No
  Sender: FDA-Public Use
  Company Number: US-BRISTOL-MYERS SQUIBB COMPANY-12773131

PATIENT
  Sex: Female

DRUGS (1)
  1. MONISTAT [Suspect]
     Route: 067
     Dates: start: 20041117, end: 20041117

REACTIONS (1)
  - VAGINAL SWELLING [None]
